FAERS Safety Report 5624601-8 (Version None)
Quarter: 2008Q1

REPORT INFORMATION
  Report Type: 
  Country: None (occurrence: None)
  Receive Date: 20080208
  Receipt Date: 20080125
  Transmission Date: 20080703
  Serious: Yes (Death)
  Sender: FDA-Public Use
  Company Number: US022462

PATIENT
  Age: 23 Year
  Sex: Male

DRUGS (3)
  1. FENTANYL [Suspect]
  2. ESCITALOPRAM [Suspect]
  3. MORPHINE [Suspect]

REACTIONS (3)
  - CARDIAC ARREST [None]
  - COMPLETED SUICIDE [None]
  - RESPIRATORY ARREST [None]
